FAERS Safety Report 17202358 (Version 1)
Quarter: 2019Q4

REPORT INFORMATION
  Report Type: Spontaneous
  Country: US (occurrence: US)
  Receive Date: 20191203
  Receipt Date: 20191203
  Transmission Date: 20200122
  Serious: Yes (Disabling)
  Sender: FDA-Public Use
  Company Number: None

PATIENT
  Age: 68 Year
  Sex: Female
  Weight: 95.25 kg

DRUGS (1)
  1. AMLODIPINE BESYLATE 5MG [Suspect]
     Active Substance: AMLODIPINE BESYLATE
     Indication: HYPERTENSION
     Dates: start: 20191014, end: 20191019

REACTIONS (2)
  - Pharyngeal swelling [None]
  - Oral mucosal blistering [None]

NARRATIVE: CASE EVENT DATE: 20191019
